FAERS Safety Report 12442267 (Version 1)
Quarter: 2016Q2

REPORT INFORMATION
  Report Type: Spontaneous
  Country: PT (occurrence: PT)
  Receive Date: 20160607
  Receipt Date: 20160607
  Transmission Date: 20160815
  Serious: Yes (Other)
  Sender: FDA-Public Use
  Company Number: PT-MYLANLABS-2016M1023428

PATIENT

DRUGS (3)
  1. INFLIXIMAB [Suspect]
     Active Substance: INFLIXIMAB
     Dosage: 3MG/KG/8 WEEKS
     Route: 065
  2. AZATHIOPRINE. [Suspect]
     Active Substance: AZATHIOPRINE
     Indication: ANAL FISTULA
     Dosage: 2.5 MG/KG/DAY
     Route: 065
  3. INFLIXIMAB [Suspect]
     Active Substance: INFLIXIMAB
     Indication: ANAL FISTULA
     Dosage: 5MG/KG/8 WEEKS
     Route: 065

REACTIONS (3)
  - Liver injury [Recovering/Resolving]
  - Alopecia areata [Recovered/Resolved]
  - Pseudolymphoma [Recovered/Resolved]
